FAERS Safety Report 6340315-3 (Version None)
Quarter: 2009Q3

REPORT INFORMATION
  Report Type: 
  Country: None (occurrence: None)
  Receive Date: 20090902
  Receipt Date: 20090818
  Transmission Date: 20100115
  Serious: Yes (Other)
  Sender: FDA-Public Use
  Company Number: 2009002508

PATIENT

DRUGS (1)
  1. TARCEVA [Suspect]
     Dosage: (MG), ORAL
     Route: 048

REACTIONS (1)
  - VASCULITIS [None]
